FAERS Safety Report 25279186 (Version 1)
Quarter: 2025Q2

REPORT INFORMATION
  Report Type: Spontaneous
  Country: US (occurrence: US)
  Receive Date: 20250507
  Receipt Date: 20250507
  Transmission Date: 20250716
  Serious: No
  Sender: BAYER HEALTHCARE PHARMACEUTICALS INC.
  Company Number: US-BAYER-2025A059966

PATIENT

DRUGS (4)
  1. KERENDIA [Suspect]
     Active Substance: FINERENONE
  2. JARDIANCE [Concomitant]
     Active Substance: EMPAGLIFLOZIN
  3. Arb [Concomitant]
  4. INSULIN NOS [Concomitant]
     Active Substance: INSULIN NOS

REACTIONS (1)
  - Blood albumin increased [None]
